FAERS Safety Report 7090731-X (Version None)
Quarter: 2010Q4

REPORT INFORMATION
  Report Type: 
  Country: None (occurrence: None)
  Receive Date: 20101012
  Receipt Date: 20100719
  Transmission Date: 20110411
  Serious: No
  Sender: FDA-Public Use
  Company Number: US-001224

PATIENT
  Sex: Male
  Weight: 15.8759 kg

DRUGS (2)
  1. KUVAN [Suspect]
     Dosage: NOT PRESCRIBED AMOUTN; 1X ORAL
     Route: 048
     Dates: start: 20100719, end: 20100719
  2. NUTRIENTS WITHOUT PHENYLALANINE [Concomitant]

REACTIONS (2)
  - ACCIDENTAL DRUG INTAKE BY CHILD [None]
  - SOMNOLENCE [None]
